FAERS Safety Report 4568256-2 (Version None)
Quarter: 2005Q1

REPORT INFORMATION
  Report Type: 
  Country: None (occurrence: None)
  Receive Date: 20050202
  Receipt Date: 20050127
  Transmission Date: 20050727
  Serious: Yes (Other)
  Sender: FDA-Public Use
  Company Number: PHBS2005FI01686

PATIENT

DRUGS (1)
  1. SANDOSTATIN [Suspect]
     Route: 065

REACTIONS (1)
  - GASTRITIS HAEMORRHAGIC [None]
